FAERS Safety Report 8369830-8 (Version None)
Quarter: 2012Q1

REPORT INFORMATION
  Report Type: 
  Country: None (occurrence: None)
  Receive Date: 20120323
  Receipt Date: 20110808
  Transmission Date: 20120608
  Serious: Yes (Hospitalization)
  Sender: FDA-Public Use
  Company Number: 163-21880-11081062

PATIENT
  Age: 88 Year
  Sex: Male

DRUGS (9)
  1. REVLIMID [Suspect]
     Indication: MYELODYSPLASTIC SYNDROME
     Dosage: 10 MG, 1 IN 1 D, PO
     Route: 048
     Dates: start: 20110407
  2. PERCOCET [Concomitant]
  3. PROTONIX [Concomitant]
  4. CEFTRIAXONE SODIUM [Concomitant]
  5. LOVENOX [Concomitant]
  6. ZITHROMAX [Concomitant]
  7. COLACE (DOCUSATE SODIUM) [Concomitant]
  8. ASPIRIN [Concomitant]
  9. SODIUM CHLORIDE [Concomitant]

REACTIONS (1)
  - LOBAR PNEUMONIA [None]
